FAERS Safety Report 9721575 (Version 1)
Quarter: 2013Q4

REPORT INFORMATION
  Report Type: Spontaneous
  Country: US (occurrence: US)
  Receive Date: 20131201
  Receipt Date: 20131201
  Transmission Date: 20140711
  Serious: No
  Sender: FDA-Public Use
  Company Number: US-009507513-1311USA010756

PATIENT
  Age: 20 Year
  Sex: Female
  Weight: 59.86 kg

DRUGS (1)
  1. IMPLANON [Suspect]
     Indication: CONTRACEPTION
     Dosage: 3 YEAR IMPLANT
     Route: 059
     Dates: start: 201112

REACTIONS (7)
  - Abdominal pain upper [Unknown]
  - Abdominal discomfort [Unknown]
  - Menstruation irregular [Unknown]
  - Rash [Unknown]
  - Rash [Unknown]
  - Rash [Unknown]
  - Menorrhagia [Unknown]
